FAERS Safety Report 5669485-7 (Version None)
Quarter: 2008Q1

REPORT INFORMATION
  Report Type: 
  Country: None (occurrence: None)
  Receive Date: 20080317
  Receipt Date: 20080311
  Transmission Date: 20080703
  Serious: Yes (Death, Life-Threatening)
  Sender: FDA-Public Use
  Company Number: JP-BAYER-200810361BYL

PATIENT
  Age: 77 Year
  Sex: Male

DRUGS (3)
  1. ASPIRIN [Suspect]
     Route: 048
  2. PANALDINE [Suspect]
     Route: 048
     Dates: start: 20070413, end: 20070607
  3. OMEPRAL [Suspect]
     Route: 048
     Dates: end: 20070607

REACTIONS (2)
  - LIVER DISORDER [None]
  - TOXIC EPIDERMAL NECROLYSIS [None]
